FAERS Safety Report 5334979-0 (Version None)
Quarter: 2007Q2

REPORT INFORMATION
  Report Type: 
  Country: None (occurrence: None)
  Receive Date: 20070308
  Receipt Date: 20070119
  Transmission Date: 20071010
  Serious: No
  Sender: FDA-Public Use
  Company Number: 2007-BP-00321BP

PATIENT
  Age: 85 Year
  Sex: Female

DRUGS (3)
  1. SPIRIVA [Suspect]
     Indication: LUNG NEOPLASM MALIGNANT
     Dosage: 18 MCG (18 MCG, 1 PUFF QD), IH
     Route: 055
     Dates: start: 20061231
  2. DIAZEPAM [Concomitant]
  3. TOPROL-XL [Concomitant]

REACTIONS (3)
  - DIZZINESS [None]
  - ROAD TRAFFIC ACCIDENT [None]
  - VISION BLURRED [None]
